FAERS Safety Report 5797636-2 (Version None)
Quarter: 2008Q3

REPORT INFORMATION
  Report Type: 
  Country: None (occurrence: None)
  Receive Date: 20080702
  Receipt Date: 20080623
  Transmission Date: 20090109
  Serious: Yes (Hospitalization)
  Sender: FDA-Public Use
  Company Number: US-JNJFOC-20080604727

PATIENT
  Sex: Female

DRUGS (10)
  1. FENTANYL TRANSDERMAL SYSTEM [Suspect]
     Indication: PAIN
     Route: 062
  2. FENTANYL TRANSDERMAL SYSTEM [Suspect]
     Route: 062
  3. FENTANYL TRANSDERMAL SYSTEM [Suspect]
     Indication: PAIN IN EXTREMITY
     Route: 062
  4. DURAGESIC-100 [Concomitant]
     Route: 062
  5. DURAGESIC-100 [Concomitant]
     Indication: PAIN
     Route: 062
  6. DURAGESIC-100 [Concomitant]
     Indication: PAIN IN EXTREMITY
     Route: 062
  7. TOPROL-XL [Concomitant]
     Indication: CARDIAC DISORDER
     Route: 048
  8. PLAVIX [Concomitant]
     Indication: CARDIAC DISORDER
     Route: 048
  9. PROTONIX [Concomitant]
     Indication: GASTRIC DISORDER
     Route: 048
  10. ASPIRIN [Concomitant]
     Indication: CARDIAC DISORDER
     Route: 048

REACTIONS (4)
  - DIZZINESS [None]
  - DRUG DOSE OMISSION [None]
  - GASTRIC DISORDER [None]
  - WITHDRAWAL SYNDROME [None]
